FAERS Safety Report 5481971-1 (Version None)
Quarter: 2007Q4

REPORT INFORMATION
  Report Type: 
  Country: None (occurrence: None)
  Receive Date: 20071005
  Receipt Date: 20070921
  Transmission Date: 20080405
  Serious: Yes (Hospitalization, Other)
  Sender: FDA-Public Use
  Company Number: 2007S1007823

PATIENT
  Age: 71 Year
  Sex: Female

DRUGS (22)
  1. CLOZAPINE [Suspect]
     Indication: SCHIZOPHRENIA
     Dosage: SEE IMAGE
     Route: 048
     Dates: start: 20010101, end: 20070809
  2. CLOZAPINE [Suspect]
     Indication: SCHIZOPHRENIA
     Dosage: SEE IMAGE
     Route: 048
     Dates: start: 20010101, end: 20070809
  3. CLOZAPINE [Suspect]
     Indication: SCHIZOPHRENIA
     Dosage: SEE IMAGE
     Route: 048
     Dates: start: 20070815
  4. CLOZAPINE [Suspect]
     Indication: SCHIZOPHRENIA
     Dosage: SEE IMAGE
     Route: 048
     Dates: start: 20070815
  5. CLOZAPINE [Suspect]
     Dosage: 200 MG; AT BEDTIME; ORAL; 100 MG; AT BEDTIME; ORAL
     Route: 048
     Dates: start: 20010101, end: 20070809
  6. CLOZAPINE [Suspect]
     Dosage: 200 MG; AT BEDTIME; ORAL; 100 MG; AT BEDTIME; ORAL
     Route: 048
     Dates: start: 20070815
  7. NAMENDA (CON.) [Concomitant]
  8. MULTIVITAMINES WITH IRON/02170101/ (CON.) [Concomitant]
  9. FEXOFENADINE (CON.) [Concomitant]
  10. FERROUS SULFATE (CON.) [Concomitant]
  11. ASPIRIN /00002701/ (CON.) [Concomitant]
  12. NITROGLYCERIN (CON.) [Concomitant]
  13. GLIPIZIDE (CON.) [Concomitant]
  14. FOLIC ACID (CON.) [Concomitant]
  15. ZETIA (CON.) [Concomitant]
  16. LEVOTHYROXINE (CON.) [Concomitant]
  17. CELEBREX (CON.) [Concomitant]
  18. ATENOLOL (CON.) [Concomitant]
  19. BUSPAR (CON.) [Concomitant]
  20. PROZAC (CON.) [Concomitant]
  21. IMDUR (CON.) [Concomitant]
  22. COLACE (CON.) [Concomitant]

REACTIONS (6)
  - DISEASE RECURRENCE [None]
  - GRANULOCYTOPENIA [None]
  - MYELODYSPLASTIC SYNDROME [None]
  - NEUTROPHIL COUNT DECREASED [None]
  - PSYCHOTIC DISORDER [None]
  - WHITE BLOOD CELL COUNT DECREASED [None]
